FAERS Safety Report 7780651-7 (Version None)
Quarter: 2011Q3

REPORT INFORMATION
  Report Type: 
  Country: None (occurrence: None)
  Receive Date: 20110927
  Receipt Date: 20110216
  Transmission Date: 20111222
  Serious: No
  Sender: FDA-Public Use
  Company Number: US-BRISTOL-MYERS SQUIBB COMPANY-15554421

PATIENT
  Sex: Female

DRUGS (4)
  1. AVAPRO [Suspect]
  2. INDAPAMIDE [Suspect]
  3. AVALIDE [Suspect]
  4. ESTROGENIC SUBSTANCE [Suspect]

REACTIONS (2)
  - OEDEMA PERIPHERAL [None]
  - MUSCLE TIGHTNESS [None]
